FAERS Safety Report 5859028-7 (Version None)
Quarter: 2008Q3

REPORT INFORMATION
  Report Type: 
  Country: None (occurrence: None)
  Receive Date: 20080825
  Receipt Date: 20080808
  Transmission Date: 20090109
  Serious: Yes (Other)
  Sender: FDA-Public Use
  Company Number: 8036011

PATIENT
  Age: 7 Year
  Sex: Male
  Weight: 28.6 kg

DRUGS (1)
  1. METHYLPHENIDATE HCL [Suspect]
     Indication: ATTENTION DEFICIT/HYPERACTIVITY DISORDER
     Dosage: 25 MG 1/D PO
     Route: 048
     Dates: start: 20080319, end: 20080529

REACTIONS (2)
  - NO THERAPEUTIC RESPONSE [None]
  - WEIGHT DECREASED [None]
